FAERS Safety Report 14265007 (Version 1)
Quarter: 2017Q4

REPORT INFORMATION
  Report Type: Spontaneous
  Country: FR (occurrence: FR)
  Receive Date: 20171208
  Receipt Date: 20171208
  Transmission Date: 20180321
  Serious: Yes (Hospitalization, Other)
  Sender: FDA-Public Use
  Company Number: FR-ELI_LILLY_AND_COMPANY-FR201712000308

PATIENT
  Age: 66 Year
  Sex: Female
  Weight: 81.5 kg

DRUGS (3)
  1. TRULICITY [Suspect]
     Active Substance: DULAGLUTIDE
     Indication: TYPE 2 DIABETES MELLITUS
     Dosage: 0.75 MG, WEEKLY (1/W)
     Route: 058
     Dates: start: 20160915, end: 201710
  2. STAGID [Concomitant]
     Active Substance: METFORMIN PAMOATE
     Indication: TYPE 2 DIABETES MELLITUS
     Dosage: 700 MG, TID
     Route: 048
     Dates: start: 1997
  3. VIT B 12 [Concomitant]
     Indication: VITAMIN B12 DEFICIENCY
     Dosage: 1000 UG, TID
     Route: 048
     Dates: start: 201708

REACTIONS (5)
  - Cholestasis [Recovering/Resolving]
  - Hepatic function abnormal [Recovered/Resolved]
  - Pancreatitis acute [Recovered/Resolved]
  - Hepatocellular injury [Unknown]
  - Lipase increased [Unknown]

NARRATIVE: CASE EVENT DATE: 20171002
